FAERS Safety Report 23854885 (Version 1)
Quarter: 2024Q2

REPORT INFORMATION
  Report Type: Spontaneous
  Country: US (occurrence: US)
  Receive Date: 20240514
  Receipt Date: 20240514
  Transmission Date: 20240716
  Serious: No
  Sender: FDA-Public Use
  Company Number: US-ANIPHARMA-2024-US-014358

PATIENT
  Sex: Female

DRUGS (23)
  1. CORTICOTROPIN [Suspect]
     Active Substance: CORTICOTROPIN
     Indication: Sarcoidosis
     Dosage: 0.5 MILLILITRE(S) - ML TWO TIMES PER WEEK
     Route: 058
  2. OZEMPIC [Concomitant]
     Active Substance: SEMAGLUTIDE
  3. ASPIRIN [Concomitant]
     Active Substance: ASPIRIN
  4. BREZTRI [Concomitant]
     Active Substance: BUDESONIDE\FORMOTEROL\GLYCOPYRROLATE
  5. CALCITRIOL [Concomitant]
     Active Substance: CALCITRIOL
  6. VITAMIN D3 [Concomitant]
     Active Substance: CHOLECALCIFEROL
  7. NOVOLOG [Concomitant]
     Active Substance: INSULIN ASPART
  8. LOSARTAN POTASSIUM/HYDROC [Concomitant]
  9. METHOTREXATE [Concomitant]
     Active Substance: METHOTREXATE
  10. MULTIVITAMIN ADULTS [Concomitant]
  11. PANTOPRAZOLE SODIUM [Concomitant]
     Active Substance: PANTOPRAZOLE SODIUM
  12. ACETAMINOPHEN [Concomitant]
     Active Substance: ACETAMINOPHEN
  13. PRED FORTE [Concomitant]
     Active Substance: PREDNISOLONE ACETATE
  14. JARDIANCE [Concomitant]
     Active Substance: EMPAGLIFLOZIN
  15. FUROSEMIDE [Concomitant]
     Active Substance: FUROSEMIDE
  16. TRESIBA [Concomitant]
     Active Substance: INSULIN DEGLUDEC
  17. ALBUTEROL [Concomitant]
     Active Substance: ALBUTEROL
  18. AMLODIPINE [Concomitant]
     Active Substance: AMLODIPINE BESYLATE
  19. FLUTICASONE PROPIONATE [Concomitant]
     Active Substance: FLUTICASONE PROPIONATE
  20. FOLIC ACID [Concomitant]
     Active Substance: FOLIC ACID
  21. RIZATRIPTAN BENZOATE [Concomitant]
     Active Substance: RIZATRIPTAN BENZOATE
  22. TRAMADOL HYDROCHLORIDE [Concomitant]
     Active Substance: TRAMADOL HYDROCHLORIDE
  23. VITAMIN B COMPLEX [Concomitant]
     Active Substance: CYANOCOBALAMIN\DEXPANTHENOL\NIACINAMIDE\PYRIDOXINE HYDROCHLORIDE\RIBOFLAVIN 5^-PHOSPHATE SODIUM\THIA

REACTIONS (4)
  - Headache [Not Recovered/Not Resolved]
  - Asthenia [Not Recovered/Not Resolved]
  - Pulmonary pain [Not Recovered/Not Resolved]
  - Condition aggravated [Not Recovered/Not Resolved]
